FAERS Safety Report 10245325 (Version 2)
Quarter: 2014Q2

REPORT INFORMATION
  Report Type: Report from Study
  Country: US (occurrence: US)
  Receive Date: 20140618
  Receipt Date: 20140618
  Transmission Date: 20141212
  Serious: Yes (Other)
  Sender: FDA-Public Use
  Company Number: US-009507513-1111USA03531

PATIENT
  Age: 56 Year
  Sex: Male
  Weight: 77.56 kg

DRUGS (3)
  1. EZETIMIBE (+) SIMVASTATIN [Suspect]
     Indication: ACUTE CORONARY SYNDROME
     Dosage: 10-40
     Route: 048
     Dates: start: 20100604
  2. PRINIVIL [Concomitant]
     Dosage: DAILY DOSE 5 MG QD
     Route: 048
     Dates: start: 20100604
  3. METOPROLOL [Concomitant]
     Dosage: DAILY DOSE 25 MG, QD
     Route: 048
     Dates: start: 20110523

REACTIONS (1)
  - Small cell lung cancer [Not Recovered/Not Resolved]
